FAERS Safety Report 19099059 (Version 1)
Quarter: 2021Q2

REPORT INFORMATION
  Report Type: Report from Study
  Country: CA (occurrence: CA)
  Receive Date: 20210406
  Receipt Date: 20210406
  Transmission Date: 20210717
  Serious: Yes (Other)
  Sender: FDA-Public Use
  Company Number: CA-PFIZER INC-2021349116

PATIENT
  Age: 57 Year
  Sex: Male

DRUGS (4)
  1. FUSIDIC ACID [Concomitant]
     Active Substance: FUSIDIC ACID
     Route: 061
  2. FOLIC ACID. [Suspect]
     Active Substance: FOLIC ACID
     Dosage: 5 MG
     Route: 048
  3. METHOTREXATE SODIUM. [Suspect]
     Active Substance: METHOTREXATE SODIUM
     Route: 048
  4. BETADERM A [Concomitant]
     Dosage: UNK, 1X/DAY
     Route: 061

REACTIONS (11)
  - Disturbance in attention [Unknown]
  - Pain [Unknown]
  - Drug ineffective [Unknown]
  - Haemorrhage [Unknown]
  - Pain in extremity [Unknown]
  - Skin haemorrhage [Unknown]
  - Back pain [Unknown]
  - Pain of skin [Unknown]
  - Skin fissures [Unknown]
  - Pruritus [Unknown]
  - Skin plaque [Unknown]
